FAERS Safety Report 14410587 (Version 2)
Quarter: 2018Q1

REPORT INFORMATION
  Report Type: Report from Study
  Country: BR (occurrence: BR)
  Receive Date: 20180119
  Receipt Date: 20180206
  Transmission Date: 20180509
  Serious: Yes (Hospitalization)
  Sender: FDA-Public Use
  Company Number: PHHY2018BR005364

PATIENT
  Age: 30 Year
  Sex: Female
  Weight: 59 kg

DRUGS (2)
  1. OMNITROPE [Suspect]
     Active Substance: SOMATROPIN
     Indication: FAT TISSUE DECREASED
     Dosage: 0.5 ML, QD
     Route: 058
     Dates: start: 201711, end: 20171214
  2. OMNITROPE [Suspect]
     Active Substance: SOMATROPIN
     Dosage: 0.5 ML, QD
     Route: 058
     Dates: start: 20180108

REACTIONS (7)
  - Vomiting [Recovering/Resolving]
  - Stress [Recovering/Resolving]
  - Concomitant disease aggravated [Recovering/Resolving]
  - Weight decreased [Recovering/Resolving]
  - Arrhythmia [Recovering/Resolving]
  - Headache [Recovering/Resolving]
  - Product use in unapproved indication [Unknown]

NARRATIVE: CASE EVENT DATE: 201711
